FAERS Safety Report 10800410 (Version 1)
Quarter: 2015Q1

REPORT INFORMATION
  Report Type: Spontaneous
  Country: US (occurrence: US)
  Receive Date: 20150216
  Receipt Date: 20150216
  Transmission Date: 20150721
  Serious: No
  Sender: FDA-Public Use
  Company Number: US-ALLERGAN-1413019US

PATIENT
  Age: 69 Year
  Sex: Female

DRUGS (6)
  1. TEGRETOL [Concomitant]
     Active Substance: CARBAMAZEPINE
     Dosage: 200 MG, QPM
     Route: 048
  2. MIRAPEX [Concomitant]
     Active Substance: PRAMIPEXOLE DIHYDROCHLORIDE
     Indication: NEUROPATHY PERIPHERAL
     Dosage: 0.25 MG, QD
     Route: 048
  3. TEGRETOL [Concomitant]
     Active Substance: CARBAMAZEPINE
     Indication: TRIGEMINAL NEURALGIA
     Dosage: 100 MG, QAM
     Route: 048
  4. RESTASIS [Suspect]
     Active Substance: CYCLOSPORINE
     Indication: DRY EYE
     Dosage: 2 GTT, BID
     Route: 047
  5. BISOPROLOL [Concomitant]
     Active Substance: BISOPROLOL
     Indication: HEART RATE INCREASED
     Dosage: 5 MG, QD
     Route: 048
  6. SYNTHROID [Concomitant]
     Active Substance: LEVOTHYROXINE SODIUM
     Dosage: 75 ?G, QD
     Route: 048

REACTIONS (2)
  - Incorrect product storage [Unknown]
  - Eye irritation [Not Recovered/Not Resolved]
